FAERS Safety Report 22208308 (Version 1)
Quarter: 2023Q2

REPORT INFORMATION
  Report Type: Spontaneous
  Country: KR (occurrence: KR)
  Receive Date: 20230413
  Receipt Date: 20230413
  Transmission Date: 20230721
  Serious: Yes (Other)
  Sender: FDA-Public Use
  Company Number: KR-MYLANLABS-2023M1038196

PATIENT
  Age: 65 Year
  Sex: Male

DRUGS (2)
  1. CELEBREX [Suspect]
     Active Substance: CELECOXIB
     Indication: Infectious pleural effusion
     Dosage: 200 MILLIGRAM, BID, (0.5 DAY)
     Route: 065
     Dates: start: 20200106, end: 20200120
  2. CELEBREX [Suspect]
     Active Substance: CELECOXIB
     Indication: Fistula

REACTIONS (2)
  - Arrhythmia [Recovered/Resolved]
  - Off label use [Unknown]

NARRATIVE: CASE EVENT DATE: 20200106
